FAERS Safety Report 8606706-2 (Version None)
Quarter: 2012Q3

REPORT INFORMATION
  Report Type: 
  Country: None (occurrence: None)
  Receive Date: 20120820
  Receipt Date: 20120813
  Transmission Date: 20120928
  Serious: Yes (Hospitalization)
  Sender: FDA-Public Use
  Company Number: DE-ROCHE-1102555

PATIENT
  Sex: Female

DRUGS (17)
  1. MABTHERA [Suspect]
     Dates: start: 20111101
  2. METHOTREXATE SODIUM [Suspect]
     Route: 048
     Dates: start: 20110901
  3. ALENDRONATE SODIUM [Concomitant]
     Dates: start: 20070101
  4. MABTHERA [Suspect]
     Dates: start: 20110222
  5. AMLODIPINE [Concomitant]
     Dates: start: 20080101
  6. FLUTICASONE PROPIONATE/SALMETEROL [Concomitant]
     Dates: start: 20100801
  7. MABTHERA [Suspect]
     Dates: start: 20100112
  8. MABTHERA [Suspect]
     Dates: start: 20100819
  9. MABTHERA [Suspect]
     Indication: RHEUMATOID ARTHRITIS
     Dates: start: 20090602
  10. CALCIUM D3 [Concomitant]
     Dates: start: 20031101
  11. TILIDINE [Concomitant]
     Dates: start: 20110401
  12. VALPROATE SODIUM [Concomitant]
     Dosage: DOSE WAS ADJUSTED
  13. METHOTREXATE SODIUM [Suspect]
     Indication: PRODUCT USED FOR UNKNOWN INDICATION
     Route: 048
     Dates: start: 20081101, end: 20110711
  14. CELEBREX [Concomitant]
     Dates: start: 20080501
  15. FOLCUR [Concomitant]
     Dates: start: 20081101
  16. LISINOPRIL VS HCTZ [Concomitant]
     Dates: start: 20100801
  17. DIPYRONE TAB [Concomitant]
     Dates: start: 20110601

REACTIONS (2)
  - CHOLELITHIASIS [None]
  - EPILEPSY [None]
